FAERS Safety Report 4619227-9 (Version None)
Quarter: 2005Q1

REPORT INFORMATION
  Report Type: 
  Country: None (occurrence: None)
  Receive Date: 20050318
  Receipt Date: 20050318
  Transmission Date: 20050727
  Serious: Yes (Hospitalization)
  Sender: FDA-Public Use
  Company Number: None

PATIENT
  Sex: Female
  Weight: 108.8633 kg

DRUGS (5)
  1. PROVIGIL [Suspect]
     Indication: MENTAL DISORDER
     Dosage: PO
     Route: 048
     Dates: start: 20041019
  2. HALDOL [Concomitant]
  3. WELLBUTRIN [Concomitant]
  4. LITHIUM [Concomitant]
  5. SONATA [Concomitant]

REACTIONS (2)
  - INSOMNIA [None]
  - NERVOUSNESS [None]
